FAERS Safety Report 7893532-5 (Version None)
Quarter: 2011Q4

REPORT INFORMATION
  Report Type: 
  Country: None (occurrence: None)
  Receive Date: 20111104
  Receipt Date: 20111026
  Transmission Date: 20120403
  Serious: Yes (Disabling)
  Sender: FDA-Public Use
  Company Number: US-MERCK-1110USA04111

PATIENT
  Sex: Male

DRUGS (1)
  1. PROPECIA [Suspect]
     Indication: ANDROGENETIC ALOPECIA
     Route: 048
     Dates: start: 20091001

REACTIONS (7)
  - TESTICULAR PAIN [None]
  - ANXIETY [None]
  - EJACULATION FAILURE [None]
  - ERECTILE DYSFUNCTION [None]
  - SENSORY LOSS [None]
  - DEPRESSION [None]
  - LIBIDO DECREASED [None]
